FAERS Safety Report 4982558-7 (Version None)
Quarter: 2006Q2

REPORT INFORMATION
  Report Type: 
  Country: None (occurrence: None)
  Receive Date: 20060421
  Receipt Date: 20060410
  Transmission Date: 20061013
  Serious: No
  Sender: FDA-Public Use
  Company Number: 06H-163-0307274-00

PATIENT
  Age: 21 Year
  Sex: Female

DRUGS (3)
  1. FENTANYL CITRATE [Suspect]
     Dosage: 50 MCG, 2 DOSES, INTRAVENOUS
     Route: 042
     Dates: start: 20060410, end: 20060410
  2. LIDOCAINE HCL [Suspect]
     Indication: LOCAL ANAESTHESIA
     Dosage: 10 CC, ONCE, SUBCUTANEOUS
     Route: 058
     Dates: start: 20060410, end: 20060410
  3. MIDAZOLAM HYDROCHLORIDE [Suspect]
     Dosage: 1 MG, 2 DOSES, INTRAVENOUS
     Route: 042
     Dates: start: 20060410, end: 20060410

REACTIONS (4)
  - ANAESTHETIC COMPLICATION [None]
  - PRURITUS [None]
  - RASH MACULAR [None]
  - URTICARIA [None]
